FAERS Safety Report 8826044 (Version 1)
Quarter: 2012Q4

REPORT INFORMATION
  Report Type: 
  Country: US (occurrence: US)
  Receive Date: 20121005
  Receipt Date: 20121005
  Transmission Date: 20130627
  Serious: Yes (Other)
  Sender: FDA-Public Use
  Company Number: US-ROCHE-1133684

PATIENT
  Sex: Male

DRUGS (17)
  1. RITUXAN [Suspect]
     Indication: NON-HODGKIN^S LYMPHOMA
     Dosage: 4 doses
     Route: 050
     Dates: start: 19990101, end: 19990203
  2. RITUXAN [Suspect]
     Route: 050
     Dates: start: 19990401
  3. DEXAMETHASONE [Concomitant]
     Route: 065
     Dates: start: 19981207, end: 19990412
  4. DEXAMETHASONE [Concomitant]
     Route: 065
     Dates: start: 19990419
  5. SEPTRA DS [Concomitant]
     Route: 065
     Dates: start: 19981207, end: 19990412
  6. SEPTRA DS [Concomitant]
     Route: 065
     Dates: start: 19990419
  7. LASIX [Concomitant]
     Dosage: half tablet
     Route: 065
     Dates: start: 19981020
  8. VALIUM [Concomitant]
     Route: 065
     Dates: start: 19980925
  9. PREVACID [Concomitant]
     Route: 065
     Dates: start: 19980921
  10. VENTOLIN INHALER [Concomitant]
     Dosage: 4 puffs
     Route: 065
     Dates: start: 19980727
  11. PULMICORT TURBUHALER [Concomitant]
     Dosage: 2 puffs
     Route: 065
     Dates: start: 19980727
  12. FOLIC ACID [Concomitant]
     Route: 065
     Dates: start: 19980421
  13. NPH INSULIN [Concomitant]
     Dosage: 40 units every AM and 20 units every PM
     Route: 065
     Dates: start: 19980417
  14. NEUPOGEN [Concomitant]
     Route: 058
     Dates: start: 19990412
  15. MYCELEX TROCHES [Concomitant]
     Route: 065
     Dates: start: 19990412
  16. CHOLESTYRAMINE [Concomitant]
     Route: 065
     Dates: start: 20000309
  17. GLUCOPHAGE [Concomitant]
     Route: 065
     Dates: start: 19990913

REACTIONS (10)
  - Pancytopenia [Unknown]
  - Warm type haemolytic anaemia [Unknown]
  - Hypersplenism [Unknown]
  - Herpes simplex [Unknown]
  - Candidiasis [Unknown]
  - Neutropenia [Unknown]
  - Fluid overload [Unknown]
  - Erythema [Unknown]
  - Oedema peripheral [Unknown]
  - Diarrhoea [Unknown]
